FAERS Safety Report 13451793 (Version 1)
Quarter: 2017Q2

REPORT INFORMATION
  Report Type: Spontaneous
  Country: US (occurrence: US)
  Receive Date: 20170418
  Receipt Date: 20170418
  Transmission Date: 20170830
  Serious: Yes (Other)
  Sender: FDA-Public Use
  Company Number: None

PATIENT
  Age: 81 Year
  Sex: Male
  Weight: 108.05 kg

DRUGS (3)
  1. NABUMETONE 500MG 2 TABS DAILY - FIBROMYALGIA - NDC #68462-0358-01 [Suspect]
     Active Substance: NABUMETONE
     Indication: LIGAMENT PAIN
     Route: 048
     Dates: start: 20170310, end: 20170319
  2. AMLODIPINE [Concomitant]
     Active Substance: AMLODIPINE BESYLATE
  3. NABUMETONE 500MG 2 TABS DAILY - FIBROMYALGIA - NDC #68462-0358-01 [Suspect]
     Active Substance: NABUMETONE
     Indication: INFLAMMATION
     Route: 048
     Dates: start: 20170310, end: 20170319

REACTIONS (1)
  - Diplopia [None]

NARRATIVE: CASE EVENT DATE: 20170319
